FAERS Safety Report 7000523-5 (Version None)
Quarter: 2010Q3

REPORT INFORMATION
  Report Type: 
  Country: None (occurrence: None)
  Receive Date: 20100920
  Receipt Date: 20070827
  Transmission Date: 20110219
  Serious: Yes (Other)
  Sender: FDA-Public Use
  Company Number: US-ASTRAZENECA-2006UW11479

PATIENT
  Age: 48 Year
  Sex: Female
  Weight: 72.6 kg

DRUGS (6)
  1. SEROQUEL [Suspect]
     Indication: BIPOLAR DISORDER
     Route: 048
     Dates: start: 19910101, end: 20040101
  2. SEROQUEL [Suspect]
     Indication: DEPRESSION
     Route: 048
     Dates: start: 19910101, end: 20040101
  3. SEROQUEL [Suspect]
     Route: 048
     Dates: start: 20030429
  4. SEROQUEL [Suspect]
     Route: 048
     Dates: start: 20030429
  5. XANAX [Concomitant]
     Dates: start: 20020626
  6. OXYCODONE HCL [Concomitant]
     Dates: start: 20020626

REACTIONS (2)
  - DIABETES MELLITUS [None]
  - DIABETIC COMA [None]
